FAERS Safety Report 11988580 (Version 1)
Quarter: 2016Q1

REPORT INFORMATION
  Report Type: Spontaneous
  Country: IT (occurrence: IT)
  Receive Date: 20160202
  Receipt Date: 20160202
  Transmission Date: 20160526
  Serious: Yes (Hospitalization)
  Sender: FDA-Public Use
  Company Number: IT-SA-2016SA015239

PATIENT
  Age: 66 Year
  Sex: Male

DRUGS (6)
  1. ADALAT [Concomitant]
     Active Substance: NIFEDIPINE
  2. DELTACORTENE [Concomitant]
     Active Substance: PREDNISONE
  3. COUMADIN [Suspect]
     Active Substance: WARFARIN SODIUM
     Indication: ANTICOAGULANT THERAPY
     Dosage: DOSE: AS REQUIRED
     Route: 048
     Dates: start: 20150101, end: 20150702
  4. ATORVASTATIN [Concomitant]
     Active Substance: ATORVASTATIN
  5. PLAQUENIL [Concomitant]
     Active Substance: HYDROXYCHLOROQUINE SULFATE
     Dosage: STRENGTH: 200MG
  6. PLAVIX [Suspect]
     Active Substance: CLOPIDOGREL BISULFATE
     Indication: THROMBOSIS PROPHYLAXIS
     Route: 048
     Dates: start: 20150101, end: 20150702

REACTIONS (3)
  - Lid margin discharge [Recovering/Resolving]
  - Conjunctival haemorrhage [Recovering/Resolving]
  - Eyelid haematoma [Recovering/Resolving]

NARRATIVE: CASE EVENT DATE: 20150701
